FAERS Safety Report 11624625 (Version 1)
Quarter: 2015Q4

REPORT INFORMATION
  Report Type: Spontaneous
  Country: US (occurrence: None)
  Receive Date: 20151009
  Receipt Date: 20151009
  Transmission Date: 20160304
  Serious: Yes (Hospitalization)
  Sender: FDA-Public Use
  Company Number: None

PATIENT
  Sex: Female

DRUGS (6)
  1. DEPOPRODERA [Concomitant]
  2. ADVIL [Concomitant]
     Active Substance: IBUPROFEN
  3. VENTOLIN [Concomitant]
     Active Substance: ALBUTEROL SULFATE
  4. ACYCLOVIR. [Concomitant]
     Active Substance: ACYCLOVIR
  5. PREDNISONE. [Concomitant]
     Active Substance: PREDNISONE
  6. ENBREL [Suspect]
     Active Substance: ETANERCEPT
     Indication: RHEUMATOID ARTHRITIS
     Route: 058
     Dates: start: 20141217

REACTIONS (1)
  - Infection [None]
